FAERS Safety Report 4607806-4 (Version None)
Quarter: 2005Q1

REPORT INFORMATION
  Report Type: 
  Country: None (occurrence: None)
  Receive Date: 20050309
  Receipt Date: 20050224
  Transmission Date: 20050727
  Serious: Yes (Hospitalization)
  Sender: FDA-Public Use
  Company Number: 2005036946

PATIENT
  Age: 45 Year
  Sex: Female

DRUGS (9)
  1. ZYRTEC [Suspect]
     Indication: ILL-DEFINED DISORDER
     Dosage: 10 MG (1D), ORAL
     Route: 048
  2. KETOPROFEN [Suspect]
     Indication: ILL-DEFINED DISORDER
     Dosage: 200 MG (1D), ORAL
     Route: 048
     Dates: end: 20041112
  3. LANSOPRAZOLE [Suspect]
     Indication: ILL-DEFINED DISORDER
     Dosage: 1 DOSAGE FOR (1 D), ORAL
     Route: 048
  4. CANDESARTAN CILEXETIL (CANDESARTAN CILEXETIL) [Suspect]
     Indication: ILL-DEFINED DISORDER
     Dosage: 16 MG (1 D), ORAL
     Route: 048
  5. LEFLUNOMIDE [Suspect]
     Indication: ILL-DEFINED DISORDER
     Dosage: 20 MG (1D), ORAL
     Route: 048
     Dates: end: 20041018
  6. ACETAMINOPHEN [Suspect]
     Indication: ILL-DEFINED DISORDER
     Dosage: 2 GRAM (1 D), ORAL
     Route: 048
  7. FERRO-FOLSAN (FERROUS SULFATE, FOLIC ACID) [Concomitant]
  8. ENDOTELON (HERBAL EXTRACTS NOS, VITIS VINIFERA) [Concomitant]
  9. MOMETASONE FUROATE [Concomitant]

REACTIONS (9)
  - ANAL SPHINCTER ATONY [None]
  - BLOOD GLUCOSE INCREASED [None]
  - COLITIS [None]
  - HEPATIC STEATOSIS [None]
  - INTESTINAL MASS [None]
  - MICROCYTIC ANAEMIA [None]
  - PANCREATITIS [None]
  - PROCTOCOLITIS [None]
  - WEIGHT DECREASED [None]
